FAERS Safety Report 6161273-0 (Version None)
Quarter: 2009Q2

REPORT INFORMATION
  Report Type: 
  Country: None (occurrence: None)
  Receive Date: 20090417
  Receipt Date: 20090409
  Transmission Date: 20091009
  Serious: Yes (Death)
  Sender: FDA-Public Use
  Company Number: 2009S1000138

PATIENT

DRUGS (1)
  1. CUBICIN [Suspect]
     Indication: WOUND INFECTION
     Dosage: 480 MG

REACTIONS (2)
  - ANTIMICROBIAL SUSCEPTIBILITY TEST RESISTANT [None]
  - BACTERAEMIA [None]
